FAERS Safety Report 24608183 (Version 2)
Quarter: 2024Q4

REPORT INFORMATION
  Report Type: Spontaneous
  Country: US (occurrence: US)
  Receive Date: 20241112
  Receipt Date: 20241118
  Transmission Date: 20250114
  Serious: Yes (Other)
  Sender: PFIZER
  Company Number: US-PFIZER INC-202101501453

PATIENT
  Age: 79 Year
  Sex: Female
  Weight: 67.12 kg

DRUGS (4)
  1. IBRANCE [Suspect]
     Active Substance: PALBOCICLIB
     Indication: Breast cancer metastatic
     Dosage: 21/28 DAYS
     Dates: start: 20201020
  2. IBRANCE [Suspect]
     Active Substance: PALBOCICLIB
     Dosage: TAKE 1 TABLET (100 MG) DAILY 21 DAYS ON AND 7 DAYS OFF
     Route: 048
     Dates: start: 20210125
  3. FEMARA [Concomitant]
     Active Substance: LETROZOLE
     Dosage: UNK, DAILY
  4. ARIMIDEX [Concomitant]
     Active Substance: ANASTROZOLE
     Dosage: UNK
     Dates: start: 20201014

REACTIONS (4)
  - Neutropenia [Unknown]
  - Immunosuppression [Unknown]
  - Anaemia [Unknown]
  - Product dispensing error [Unknown]
